FAERS Safety Report 13659522 (Version 1)
Quarter: 2017Q2

REPORT INFORMATION
  Report Type: Spontaneous
  Country: US (occurrence: US)
  Receive Date: 20170616
  Receipt Date: 20170616
  Transmission Date: 20170830
  Serious: Yes (Hospitalization)
  Sender: FDA-Public Use
  Company Number: None

PATIENT
  Age: 77 Year
  Sex: Male
  Weight: 114.4 kg

DRUGS (12)
  1. ASPIRIN. [Suspect]
     Active Substance: ASPIRIN
     Indication: TRANSIENT ISCHAEMIC ATTACK
     Route: 048
  2. COLACE [Concomitant]
     Active Substance: DOCUSATE SODIUM
  3. PRILOSEC [Concomitant]
     Active Substance: OMEPRAZOLE MAGNESIUM
  4. AMLODIPINE [Concomitant]
     Active Substance: AMLODIPINE BESYLATE
  5. NOVOLOG [Concomitant]
     Active Substance: INSULIN ASPART
  6. LASIX [Concomitant]
     Active Substance: FUROSEMIDE
  7. WARFARIN [Suspect]
     Active Substance: WARFARIN
     Indication: ATRIAL FIBRILLATION
     Dosage: 7MG DAILY WITH PM MEAL PO
     Route: 048
  8. LIPITOR [Concomitant]
     Active Substance: ATORVASTATIN CALCIUM
  9. LANTUS [Concomitant]
     Active Substance: INSULIN GLARGINE
  10. VITD3 [Concomitant]
  11. APAP [Concomitant]
     Active Substance: ACETAMINOPHEN
  12. LOPRESSOR [Concomitant]
     Active Substance: METOPROLOL TARTRATE

REACTIONS (3)
  - Cerebral haemorrhage [None]
  - Hypertension [None]
  - Coagulopathy [None]

NARRATIVE: CASE EVENT DATE: 20170221
